FAERS Safety Report 11200757 (Version 2)
Quarter: 2015Q2

REPORT INFORMATION
  Report Type: Report from Study
  Country: CA (occurrence: CA)
  Receive Date: 20150618
  Receipt Date: 20150626
  Transmission Date: 20150821
  Serious: Yes (Death, Hospitalization, Other)
  Sender: FDA-Public Use
  Company Number: CA-GILEAD-2014-0113524

PATIENT
  Age: 38 Year
  Sex: Male

DRUGS (4)
  1. RIBAVIRIN. [Suspect]
     Active Substance: RIBAVIRIN
     Indication: CHRONIC HEPATITIS C
     Dosage: 800 MG IN THE MORNING AND 600 MG IN THE EVENING
     Route: 065
     Dates: start: 20150324, end: 20150515
  2. PEGASYS [Suspect]
     Active Substance: PEGINTERFERON ALFA-2A
     Indication: CHRONIC HEPATITIS C
     Dosage: 400 MG, QD
     Route: 065
     Dates: end: 201505
  3. NADOLOL. [Concomitant]
     Active Substance: NADOLOL
  4. SOFOSBUVIR [Suspect]
     Active Substance: SOFOSBUVIR
     Indication: CHRONIC HEPATITIS C
     Dosage: 400 MG, UNK
     Route: 065
     Dates: start: 20150324, end: 20150515

REACTIONS (6)
  - Cardiac arrest [Fatal]
  - Coma [Fatal]
  - Drug ineffective [Unknown]
  - Infection [Fatal]
  - Hepatitis C [Unknown]
  - Septic shock [Fatal]

NARRATIVE: CASE EVENT DATE: 201505
